FAERS Safety Report 5542690-6 (Version None)
Quarter: 2007Q4

REPORT INFORMATION
  Report Type: 
  Country: None (occurrence: None)
  Receive Date: 20071206
  Receipt Date: 20071121
  Transmission Date: 20080405
  Serious: Yes (Death, Life-Threatening, Hospitalization)
  Sender: FDA-Public Use
  Company Number: 2007002295

PATIENT
  Age: 71 Year
  Sex: Male

DRUGS (15)
  1. ERLOTINIB / PLACEBO (ERLOTINIB HCL) (TABLET) (ERLOTINIB HCL) [Suspect]
     Indication: NON-SMALL CELL LUNG CANCER
     Dosage: (150 MG, QD), ORAL
     Route: 048
     Dates: start: 20070822, end: 20071022
  2. VICODIN [Concomitant]
  3. ADVAIR DISKUS 100/50 [Concomitant]
  4. AMIODARONE HCL [Concomitant]
  5. BACTROBAN [Concomitant]
  6. COUMADIN [Concomitant]
  7. MIRALAX [Concomitant]
  8. NEXIUM [Concomitant]
  9. PREDNISONE [Concomitant]
  10. RESTORIL [Concomitant]
  11. SAW PALMETTO (SERENOA REPENS) [Concomitant]
  12. SEROQUEL [Concomitant]
  13. SPIRIVA [Concomitant]
  14. TRIPLE MIX [Concomitant]
  15. LIDOCAINE [Concomitant]

REACTIONS (18)
  - ABDOMINAL PAIN [None]
  - ABDOMINAL TENDERNESS [None]
  - ASTHENIA [None]
  - ATELECTASIS [None]
  - BLOOD PRESSURE INCREASED [None]
  - BRONCHOSCOPY ABNORMAL [None]
  - COMPUTERISED TOMOGRAM ABDOMEN ABNORMAL [None]
  - COMPUTERISED TOMOGRAM THORAX ABNORMAL [None]
  - DISEASE PROGRESSION [None]
  - DIZZINESS [None]
  - HAEMATOCRIT DECREASED [None]
  - HAEMOGLOBIN DECREASED [None]
  - HEART RATE INCREASED [None]
  - HYPOTENSION [None]
  - ILEUS [None]
  - MEDIASTINAL SHIFT [None]
  - PLEURAL EFFUSION [None]
  - WHITE BLOOD CELL COUNT INCREASED [None]
